FAERS Safety Report 18100434 (Version 1)
Quarter: 2020Q3

REPORT INFORMATION
  Report Type: Other
  Country: PL (occurrence: PL)
  Receive Date: 20200731
  Receipt Date: 20200731
  Transmission Date: 20201103
  Serious: Yes (Hospitalization, Other)
  Sender: FDA-Public Use
  Company Number: PL-US-PROVELL PHARMACEUTICALS LLC-E2B_90014711

PATIENT
  Age: 37 Year
  Sex: Female

DRUGS (42)
  1. ACETYLSALICYLIC ACID [Suspect]
     Active Substance: ASPIRIN
     Indication: PROPHYLAXIS
  2. ERYTHROPOIETIN [Suspect]
     Active Substance: ERYTHROPOIETIN
     Dosage: (AFTER EACH DIALYSIS)
     Route: 058
  3. FERINJECT [Suspect]
     Active Substance: FERRIC CARBOXYMALTOSE
     Dosage: 50 MG/ML
     Route: 042
  4. FOLIC ACID. [Suspect]
     Active Substance: FOLIC ACID
     Indication: PRODUCT USED FOR UNKNOWN INDICATION
     Dosage: THERAPY START DATE:01?MAR?2015
     Route: 048
  5. COLECALCIFEROL W/RISEDRONIC ACID [Concomitant]
     Indication: PRODUCT USED FOR UNKNOWN INDICATION
  6. SIMVASTATIN. [Suspect]
     Active Substance: SIMVASTATIN
     Indication: HYPERCHOLESTEROLAEMIA
     Dosage: THERAPY END DATE: 2015
     Route: 065
  7. SPIRAMYCIN [Suspect]
     Active Substance: SPIRAMYCIN
     Indication: TOXOPLASMOSIS
     Dosage: THERAPY START DATE : 01 MAY 2015
     Route: 065
  8. EPOETIN BETA [Suspect]
     Active Substance: ERYTHROPOIETIN
     Route: 058
  9. ACETYLSALICYLIC ACID [Suspect]
     Active Substance: ASPIRIN
     Indication: PROPHYLAXIS
     Dosage: THERAPY START DATE : 01 MAR 2015
     Route: 048
  10. ERYTHROPOIETIN [Suspect]
     Active Substance: ERYTHROPOIETIN
     Indication: PRODUCT USED FOR UNKNOWN INDICATION
     Dosage: THERAPY START DATE: AUG 2015
     Route: 058
  11. VENOFER [Suspect]
     Active Substance: IRON SUCROSE
     Indication: PRODUCT USED FOR UNKNOWN INDICATION
     Route: 042
  12. ALFACALCIDOL [Suspect]
     Active Substance: ALFACALCIDOL
     Indication: HYPERPARATHYROIDISM
     Route: 065
  13. VITAMIN D3 [Concomitant]
     Active Substance: CHOLECALCIFEROL
     Indication: PRODUCT USED FOR UNKNOWN INDICATION
     Route: 065
  14. IRON [Suspect]
     Active Substance: IRON
     Route: 048
     Dates: start: 201408
  15. HEPARIN [Suspect]
     Active Substance: HEPARIN SODIUM
     Indication: ANTICOAGULANT THERAPY
     Route: 065
  16. IRON DEXTRAN [Suspect]
     Active Substance: IRON DEXTRAN
     Route: 048
     Dates: start: 201408
  17. EPOETIN BETA [Suspect]
     Active Substance: ERYTHROPOIETIN
     Dosage: THERAPY START DATE: AUG 2015, AFTER EACH DIALYSIS
     Route: 058
  18. ERYTHROPOIETIN [Suspect]
     Active Substance: ERYTHROPOIETIN
     Dosage: AFTER EACH DIALYSIS
     Route: 058
  19. IRON [Suspect]
     Active Substance: IRON
     Indication: PRODUCT USED FOR UNKNOWN INDICATION
     Dosage: THERAPY START DATE : AUG 2014
     Route: 042
  20. MALTOFER                           /00023548/ [Suspect]
     Active Substance: IRON POLYMALTOSE
     Route: 048
     Dates: start: 201503
  21. IRON DEXTRAN [Suspect]
     Active Substance: IRON DEXTRAN
     Indication: PRODUCT USED FOR UNKNOWN INDICATION
     Route: 042
  22. EPOETIN BETA [Suspect]
     Active Substance: ERYTHROPOIETIN
     Indication: PRODUCT USED FOR UNKNOWN INDICATION
     Dosage: UNKNOWN
     Route: 065
  23. TORASEMIDE [Suspect]
     Active Substance: TORSEMIDE
     Indication: HYPERTENSION
     Dosage: UNKNOWN
     Route: 065
  24. FERINJECT [Suspect]
     Active Substance: FERRIC CARBOXYMALTOSE
     Indication: PRODUCT USED FOR UNKNOWN INDICATION
     Dosage: THERAPY START AND END DATE : AUG 2014
     Route: 042
  25. IRON DEXTRAN [Suspect]
     Active Substance: IRON DEXTRAN
     Route: 042
     Dates: start: 201408
  26. METHYLDOPA. [Suspect]
     Active Substance: METHYLDOPA
     Indication: HYPERTENSION
     Dosage: THERAPY START DATE : 01 MAR 2015
     Route: 065
  27. EPOETIN BETA [Suspect]
     Active Substance: ERYTHROPOIETIN
     Dosage: AFTER EACH DIALYSIS
     Route: 058
  28. MALTOFER                           /00023548/ [Suspect]
     Active Substance: IRON POLYMALTOSE
     Indication: PRODUCT USED FOR UNKNOWN INDICATION
     Route: 048
  29. VENOFER [Suspect]
     Active Substance: IRON SUCROSE
     Route: 048
     Dates: start: 201503
  30. IRON DEXTRAN [Suspect]
     Active Substance: IRON DEXTRAN
     Route: 048
     Dates: start: 201503
  31. ASCORBIC ACID W/CALCIUM GLUBIONATE [Concomitant]
     Active Substance: ASCORBIC ACID\CALCIUM GLUBIONATE
     Indication: PRODUCT USED FOR UNKNOWN INDICATION
     Dates: start: 201503
  32. RISEDRONIC ACID [Concomitant]
     Active Substance: RISEDRONIC ACID
     Indication: PRODUCT USED FOR UNKNOWN INDICATION
     Route: 065
  33. LEVOTHYROXINE SODIUM. [Suspect]
     Active Substance: LEVOTHYROXINE SODIUM
     Indication: HYPOTHYROIDISM
     Dosage: THERAPY START DATE: 01 MAY 2015
     Route: 065
  34. SPIRAMYCIN [Suspect]
     Active Substance: SPIRAMYCIN
     Indication: CYSTITIS
     Dosage: UNKNOWN
     Route: 065
  35. CEFUROXIME. [Suspect]
     Active Substance: CEFUROXIME
     Indication: CYSTITIS
     Dosage: THERAPY START DATE : 01 MAY 2015
     Route: 065
  36. EPOETIN BETA [Suspect]
     Active Substance: ERYTHROPOIETIN
     Dosage: AFTER EACH DIALYSIS
     Route: 058
  37. TORASEMIDE [Suspect]
     Active Substance: TORSEMIDE
     Route: 065
  38. IRON [Suspect]
     Active Substance: IRON
     Route: 048
     Dates: start: 201503
  39. VENOFER [Suspect]
     Active Substance: IRON SUCROSE
     Dosage: VENOFER LEK
     Route: 048
     Dates: start: 201408
  40. ASCORBIC ACID. [Suspect]
     Active Substance: ASCORBIC ACID
     Indication: PRODUCT USED FOR UNKNOWN INDICATION
     Dosage: UNIT DOSE: 1 (UNSPECIFIED UNITS)
     Route: 048
     Dates: start: 201503
  41. FERACCRU [Suspect]
     Active Substance: FERRIC MALTOL
     Indication: PRODUCT USED FOR UNKNOWN INDICATION
     Dosage: THERAPY START DATE: MAR 2015
     Route: 065
  42. ASCORBIC ACID W/FERROUS SULFATE [Concomitant]
     Active Substance: ASCORBIC ACID\FERROUS SULFATE
     Indication: PRODUCT USED FOR UNKNOWN INDICATION
     Dates: start: 201503

REACTIONS (11)
  - Premature delivery [Recovered/Resolved]
  - Cystitis [Unknown]
  - Haematocrit decreased [Unknown]
  - Toxoplasmosis [Unknown]
  - Hypothyroidism [Unknown]
  - Live birth [Recovered/Resolved]
  - Premature rupture of membranes [Recovered/Resolved]
  - Haemoglobin decreased [Unknown]
  - Blood albumin decreased [Unknown]
  - Maternal exposure during pregnancy [Recovered/Resolved]
  - Oedema peripheral [Unknown]

NARRATIVE: CASE EVENT DATE: 201505
